FAERS Safety Report 14168771 (Version 1)
Quarter: 2017Q4

REPORT INFORMATION
  Report Type: Spontaneous
  Country: US (occurrence: None)
  Receive Date: 20171107
  Receipt Date: 20171107
  Transmission Date: 20180321
  Serious: No
  Sender: FDA-Public Use
  Company Number: None

PATIENT
  Age: 86 Year
  Sex: Female
  Weight: 58.97 kg

DRUGS (13)
  1. ACYCLOVIR. [Concomitant]
     Active Substance: ACYCLOVIR
  2. MORPHINE SULFATE. [Suspect]
     Active Substance: MORPHINE SULFATE
  3. POTASSIUM [Concomitant]
     Active Substance: POTASSIUM
  4. OMEPRAZOLE. [Concomitant]
     Active Substance: OMEPRAZOLE
  5. FUROSEMIDE. [Concomitant]
     Active Substance: FUROSEMIDE
  6. TEMEZEPAM [Concomitant]
     Active Substance: TEMAZEPAM
  7. LOSARTAN POTASSIUM. [Concomitant]
     Active Substance: LOSARTAN POTASSIUM
  8. SYNTHROID [Concomitant]
     Active Substance: LEVOTHYROXINE SODIUM
  9. CLONIDINE HCL [Concomitant]
     Active Substance: CLONIDINE HYDROCHLORIDE
  10. LININOPRIL [Concomitant]
  11. MULTIVITAMINS [Concomitant]
     Active Substance: VITAMINS
  12. TRIPLE MAGNESIUM [Concomitant]
  13. ATENOL [Concomitant]
     Active Substance: ATENOLOL

REACTIONS (3)
  - Adverse drug reaction [None]
  - Post procedural complication [None]
  - Skin disorder [None]

NARRATIVE: CASE EVENT DATE: 20051003
